FAERS Safety Report 4378212-5 (Version None)
Quarter: 2004Q2

REPORT INFORMATION
  Report Type: 
  Country: None (occurrence: None)
  Receive Date: 20040609
  Receipt Date: 20040520
  Transmission Date: 20050107
  Serious: Yes (Hospitalization, Disabling)
  Sender: FDA-Public Use
  Company Number: GBS040314617

PATIENT
  Age: 16 Year
  Sex: Female

DRUGS (4)
  1. FLUOXETINE [Suspect]
     Indication: DEPRESSION
     Dosage: 40 MG DAY
     Dates: start: 20040210, end: 20040316
  2. FLUOXETINE [Suspect]
     Indication: SCHIZOPHRENIA
     Dosage: 40 MG DAY
     Dates: start: 20040210, end: 20040316
  3. QUETIAPINE [Concomitant]
  4. DIAZEPAM [Concomitant]

REACTIONS (2)
  - PAIN [None]
  - PARAPLEGIA [None]
